FAERS Safety Report 15195275 (Version 2)
Quarter: 2018Q3

REPORT INFORMATION
  Report Type: Spontaneous
  Country: DE (occurrence: DE)
  Receive Date: 20180725
  Receipt Date: 20180731
  Transmission Date: 20181010
  Serious: Yes (Death, Other)
  Sender: FDA-Public Use
  Company Number: DE-ASTRAZENECA-2018SE93029

PATIENT
  Age: 74 Year
  Sex: Male

DRUGS (14)
  1. LEVOMEPROMAZINE [Interacting]
     Active Substance: LEVOMEPROMAZINE
     Route: 048
  2. SEROQUEL [Suspect]
     Active Substance: QUETIAPINE FUMARATE
     Route: 048
  3. METFORMIN [Interacting]
     Active Substance: METFORMIN HYDROCHLORIDE
     Dosage: 500.0MG UNKNOWN
     Route: 048
  4. DONEPEZIL. [Interacting]
     Active Substance: DONEPEZIL
     Route: 048
  5. APIDRA [Interacting]
     Active Substance: INSULIN GLULISINE
     Route: 048
  6. TAMSULOSIN [Interacting]
     Active Substance: TAMSULOSIN
     Route: 048
  7. ALLOPURINOL. [Interacting]
     Active Substance: ALLOPURINOL
     Route: 048
  8. BISOPROLOL [Interacting]
     Active Substance: BISOPROLOL
     Route: 048
  9. SIMVASTATIN. [Interacting]
     Active Substance: SIMVASTATIN
     Route: 048
  10. CANDECOR COMP [Interacting]
     Active Substance: CANDESARTAN CILEXETIL\HYDROCHLOROTHIAZIDE
     Route: 048
  11. LANTUS [Interacting]
     Active Substance: INSULIN GLARGINE
     Route: 048
  12. FALITHROM [Interacting]
     Active Substance: PHENPROCOUMON
     Route: 048
  13. RISPERDAL [Interacting]
     Active Substance: RISPERIDONE
     Route: 048
  14. TOREM [Interacting]
     Active Substance: TORSEMIDE
     Route: 048

REACTIONS (17)
  - Intestinal haemorrhage [Unknown]
  - Dizziness [Unknown]
  - Adverse drug reaction [Unknown]
  - Haematoma [Unknown]
  - Drug interaction [Unknown]
  - Gastric haemorrhage [Unknown]
  - Gastrointestinal haemorrhage [Unknown]
  - Renal failure [Unknown]
  - Cognitive disorder [Unknown]
  - Contraindicated product administered [Unknown]
  - Hyperhidrosis [Unknown]
  - Blood glucose fluctuation [Unknown]
  - Urinary incontinence [Unknown]
  - Confusional state [Unknown]
  - Balance disorder [Unknown]
  - Blood glucose abnormal [Unknown]
  - Contusion [Unknown]
